FAERS Safety Report 12964014 (Version 4)
Quarter: 2017Q1

REPORT INFORMATION
  Report Type: Spontaneous
  Country: DE (occurrence: DE)
  Receive Date: 20161122
  Receipt Date: 20170329
  Transmission Date: 20170428
  Serious: Yes (Death, Hospitalization, Other)
  Sender: FDA-Public Use
  Company Number: PHHY2016DE158776

PATIENT
  Age: 77 Year
  Sex: Male

DRUGS (11)
  1. PAZOPANIB [Suspect]
     Active Substance: PAZOPANIB
     Indication: METASTASES TO PLEURA
  2. NOVAMINSULFON [Concomitant]
     Active Substance: METAMIZOLE
     Indication: PRODUCT USED FOR UNKNOWN INDICATION
     Dosage: 500 MG, UNK
     Route: 048
  3. HCT [Concomitant]
     Active Substance: HYDROCHLOROTHIAZIDE
     Indication: PRODUCT USED FOR UNKNOWN INDICATION
     Dosage: 25 MG, QD
     Route: 048
  4. METOPROLOL. [Concomitant]
     Active Substance: METOPROLOL
     Indication: PRODUCT USED FOR UNKNOWN INDICATION
     Dosage: 200 MG, QD
     Route: 048
  5. APIXABAN [Concomitant]
     Active Substance: APIXABAN
     Indication: PRODUCT USED FOR UNKNOWN INDICATION
     Dosage: 5 MG, QD
     Route: 048
  6. SALIVA NATURA [Concomitant]
     Indication: PRODUCT USED FOR UNKNOWN INDICATION
     Dosage: 4 DF, QD
     Route: 048
  7. PANTOPRAZOL [Concomitant]
     Active Substance: PANTOPRAZOLE SODIUM
     Indication: PRODUCT USED FOR UNKNOWN INDICATION
     Dosage: 40 MG, QD
     Route: 048
  8. PANTOPRAZOL [Concomitant]
     Active Substance: PANTOPRAZOLE SODIUM
     Dosage: 40 MG, BID (1-0-1)
  9. PAZOPANIB [Suspect]
     Active Substance: PAZOPANIB
     Indication: METASTATIC RENAL CELL CARCINOMA
     Dosage: 400 MG, QOD
     Route: 048
     Dates: start: 20160929, end: 20161008
  10. MICARDIS [Concomitant]
     Active Substance: TELMISARTAN
     Indication: PRODUCT USED FOR UNKNOWN INDICATION
     Dosage: 40 MG, BID (1-0-1)
     Route: 048
  11. TOREM [Concomitant]
     Active Substance: TORSEMIDE
     Indication: PRODUCT USED FOR UNKNOWN INDICATION
     Dosage: 10 MG, (0.5-0-0)
     Route: 065

REACTIONS (43)
  - Foetor hepaticus [Fatal]
  - Fatigue [Fatal]
  - Acute hepatic failure [Fatal]
  - Somnolence [Unknown]
  - Cholestasis [Unknown]
  - Arteriosclerosis coronary artery [Unknown]
  - Metastases to lung [Unknown]
  - Mental status changes [Fatal]
  - Renal failure [Fatal]
  - Pleural adhesion [Unknown]
  - Myocardial fibrosis [Unknown]
  - Cardiac hypertrophy [Unknown]
  - Pulmonary congestion [Unknown]
  - Aphasia [Unknown]
  - Mucosal dryness [Unknown]
  - Emphysema [Unknown]
  - Benign prostatic hyperplasia [Unknown]
  - Hallucination [Fatal]
  - Shock [Fatal]
  - Disturbance in attention [Unknown]
  - Dehydration [Unknown]
  - Atrial tachycardia [Unknown]
  - Antinuclear antibody positive [Unknown]
  - Metastases to pleura [Unknown]
  - Pharyngeal erythema [Unknown]
  - Transaminases increased [Fatal]
  - Aortic arteriosclerosis [Unknown]
  - Hepatic necrosis [Unknown]
  - Hepatic encephalopathy [Fatal]
  - Ascites [Fatal]
  - General physical health deterioration [Unknown]
  - Pleurisy [Unknown]
  - Metastases to lymph nodes [Unknown]
  - Breath sounds abnormal [Unknown]
  - Asterixis [Fatal]
  - Drug-induced liver injury [Fatal]
  - Myocardial ischaemia [Unknown]
  - Infection [Unknown]
  - Diverticulum [Unknown]
  - Breath odour [Fatal]
  - Pleural effusion [Unknown]
  - Eosinophil morphology abnormal [Unknown]
  - Moaning [Unknown]

NARRATIVE: CASE EVENT DATE: 20161007
